FAERS Safety Report 15658538 (Version 1)
Quarter: 2018Q4

REPORT INFORMATION
  Report Type: Report from Study
  Country: CA (occurrence: CA)
  Receive Date: 20181126
  Receipt Date: 20181126
  Transmission Date: 20190205
  Serious: Yes (Other)
  Sender: FDA-Public Use
  Company Number: CA-SA-2017SA223658

PATIENT
  Age: 39 Year
  Sex: Male

DRUGS (14)
  1. ALEMTUZUMAB [Suspect]
     Active Substance: ALEMTUZUMAB
     Indication: RELAPSING-REMITTING MULTIPLE SCLEROSIS
     Dosage: 12 MG,QD
     Route: 041
     Dates: start: 20171106, end: 20171110
  2. ACICLOVIR [Concomitant]
     Active Substance: ACYCLOVIR
     Indication: PREMEDICATION
     Dosage: 200 MG,BID
     Route: 048
     Dates: start: 20171106
  3. PARACETAMOL [Concomitant]
     Active Substance: ACETAMINOPHEN
     Indication: PREMEDICATION
     Dosage: 975 MG,
     Route: 048
     Dates: start: 20171106
  4. DETROL [Concomitant]
     Active Substance: TOLTERODINE TARTRATE
     Dosage: 5 MG,QD
     Route: 048
  5. LINUM USITATISSIMUM SEED OIL [Concomitant]
     Dosage: QD
     Route: 048
  6. BENADRYL [Concomitant]
     Active Substance: DIPHENHYDRAMINE HYDROCHLORIDE
     Indication: PREMEDICATION
     Dosage: 50 MG
     Route: 048
     Dates: start: 20171106
  7. RANITIDINE. [Concomitant]
     Active Substance: RANITIDINE
     Indication: PREMEDICATION
     Dosage: 150 MG,
     Route: 048
     Dates: start: 20171106, end: 20171110
  8. CYANOCOBALAMIN. [Concomitant]
     Active Substance: CYANOCOBALAMIN
     Dosage: QD
     Route: 048
  9. METHYLPREDNISOLONE. [Suspect]
     Active Substance: METHYLPREDNISOLONE
     Dosage: 500MG
     Route: 042
     Dates: start: 20171106, end: 20171108
  10. GRAVOL [Concomitant]
     Active Substance: DIMENHYDRINATE
     Indication: PREMEDICATION
     Dosage: 50 MG,
     Route: 048
     Dates: start: 20171106, end: 20171110
  11. CIALIS [Concomitant]
     Active Substance: TADALAFIL
     Dosage: UNK UNK,QD
     Route: 048
  12. REACTINE [CETIRIZINE HYDROCHLORIDE] [Concomitant]
     Active Substance: CETIRIZINE HYDROCHLORIDE
     Indication: PREMEDICATION
     Dosage: 10 MG
     Route: 048
     Dates: start: 20171106, end: 20171110
  13. ZINC. [Concomitant]
     Active Substance: ZINC
     Dosage: QD
     Route: 048
  14. ERGOCALCIFEROL. [Concomitant]
     Active Substance: ERGOCALCIFEROL
     Dosage: UNK UNK,QD
     Route: 048

REACTIONS (27)
  - Erythema [Recovered/Resolved]
  - Pyrexia [Recovering/Resolving]
  - Epigastric discomfort [Recovered/Resolved]
  - Flushing [Recovered/Resolved]
  - Chest discomfort [Recovered/Resolved]
  - Multiple sclerosis relapse [Recovered/Resolved]
  - Micturition urgency [Recovering/Resolving]
  - Cough [Recovering/Resolving]
  - Dysgeusia [Recovered/Resolved]
  - Rash [Recovered/Resolved]
  - White blood cell count decreased [Not Recovered/Not Resolved]
  - Epistaxis [Recovered/Resolved]
  - Pyrexia [Recovered/Resolved]
  - Eye symptom [Recovered/Resolved]
  - Mean cell volume increased [Recovered/Resolved]
  - Night sweats [Recovered/Resolved]
  - Tachycardia [Recovered/Resolved]
  - Headache [Recovered/Resolved]
  - Sinus congestion [Recovering/Resolving]
  - Oropharyngeal pain [Recovering/Resolving]
  - Gamma-glutamyltransferase decreased [Unknown]
  - Rash macular [Recovered/Resolved]
  - Urine ketone body present [Not Recovered/Not Resolved]
  - Mean cell haemoglobin increased [Not Recovered/Not Resolved]
  - Muscular weakness [Recovered/Resolved]
  - Malaise [Recovering/Resolving]
  - Lymphocyte count decreased [Not Recovered/Not Resolved]

NARRATIVE: CASE EVENT DATE: 20171106
